FAERS Safety Report 5820850-4 (Version None)
Quarter: 2008Q3

REPORT INFORMATION
  Report Type: 
  Country: None (occurrence: None)
  Receive Date: 20080718
  Receipt Date: 20080718
  Transmission Date: 20090109
  Serious: No
  Sender: FDA-Public Use
  Company Number: None

PATIENT
  Sex: Female
  Weight: 40.8237 kg

DRUGS (1)
  1. FORTEO [Suspect]
     Dosage: 20 MCG DAILY SQ
     Route: 058

REACTIONS (15)
  - ABDOMINAL DISTENSION [None]
  - BACK PAIN [None]
  - BLOOD DISORDER [None]
  - DIZZINESS [None]
  - ERYTHEMA [None]
  - GASTRIC INFECTION [None]
  - INFECTION [None]
  - MUSCULOSKELETAL DISORDER [None]
  - NAUSEA [None]
  - OEDEMA PERIPHERAL [None]
  - PAIN [None]
  - PAIN IN EXTREMITY [None]
  - SPINAL DISORDER [None]
  - VOMITING [None]
  - WEIGHT INCREASED [None]
